FAERS Safety Report 8806702 (Version 1)
Quarter: 2012Q4

REPORT INFORMATION
  Report Type: 
  Country: JM (occurrence: JM)
  Receive Date: 20120925
  Receipt Date: 20120925
  Transmission Date: 20130627
  Serious: Yes (Other)
  Sender: FDA-Public Use
  Company Number: PHHY2012JM081744

PATIENT
  Sex: Male

DRUGS (2)
  1. GLIVEC [Suspect]
     Dosage: 400 mg, UNK
  2. GLIVEC [Suspect]
     Dosage: 800 mg, UNK

REACTIONS (6)
  - Bone marrow reticulin fibrosis [Unknown]
  - Neoplasm progression [Unknown]
  - Malignant neoplasm progression [Unknown]
  - Pyrexia [Unknown]
  - Bone pain [Unknown]
  - Drug ineffective [Unknown]
